FAERS Safety Report 8730339 (Version 3)
Quarter: 2013Q1

REPORT INFORMATION
  Report Type: Spontaneous
  Country: GB (occurrence: GB)
  Receive Date: 20120817
  Receipt Date: 20130108
  Transmission Date: 20140127
  Serious: Yes (Other)
  Sender: FDA-Public Use
  Company Number: GB-ELI_LILLY_AND_COMPANY-GB201208001901

PATIENT
  Age: 59 Year
  Sex: Male
  Weight: 102 kg

DRUGS (11)
  1. BYETTA [Suspect]
     Indication: TYPE 2 DIABETES MELLITUS
     Dosage: 5 UG, BID
     Route: 058
     Dates: start: 201203
  2. BYETTA [Suspect]
     Dosage: 10 UG, BID
     Route: 058
     Dates: start: 201204
  3. PIOGLITAZONE [Concomitant]
     Dosage: 45 MG, UNK
     Dates: end: 201203
  4. GLIMEPIRIDE [Concomitant]
     Dosage: 1 MG, UNK
     Dates: end: 201203
  5. METFORMIN [Concomitant]
     Dosage: 1 G, BID
  6. CIALIS [Concomitant]
     Dosage: UNK
  7. FUROSEMIDE [Concomitant]
     Dosage: UNK
  8. SIMVASTATIN [Concomitant]
     Dosage: UNK
  9. ASPIRIN [Concomitant]
     Dosage: UNK
  10. QUININE SULPHATE [Concomitant]
     Dosage: UNK
  11. CANDESARTAN [Concomitant]
     Dosage: UNK

REACTIONS (3)
  - Glycosylated haemoglobin increased [Recovering/Resolving]
  - Weight decreased [Recovered/Resolved]
  - Pancreatic disorder [Unknown]
